FAERS Safety Report 17425673 (Version 3)
Quarter: 2020Q1

REPORT INFORMATION
  Report Type: Report from Study
  Country: IL (occurrence: IL)
  Receive Date: 20200218
  Receipt Date: 20200227
  Transmission Date: 20200409
  Serious: No
  Sender: FDA-Public Use
  Company Number: IL-ROCHE-2271030

PATIENT
  Age: 64 Year
  Sex: Female
  Weight: 64.2 kg

DRUGS (6)
  1. ACAMOLI [Concomitant]
     Indication: ARTHRALGIA
     Route: 048
     Dates: start: 20190121, end: 20190121
  2. ATEZOLIZUMAB. [Suspect]
     Active Substance: ATEZOLIZUMAB
     Indication: BREAST CANCER
     Dosage: ON DAYS 1 AND 15 OF EACH 28-DAY CYCLE (PER PROTOCOL) DOSE OF LAST STUDY DRUG PRIOR TO AE ONSET: 1200
     Route: 042
     Dates: start: 20190109, end: 20190219
  3. HEXAKAPRON [Concomitant]
     Active Substance: TRANEXAMIC ACID
     Route: 061
     Dates: start: 201812, end: 20190219
  4. ENTINOSTAT [Suspect]
     Active Substance: ENTINOSTAT
     Indication: BREAST CANCER
     Dosage: DOSE OF LAST STUDY DRUG PRIOR TO AE ONSET: 5MG?DATE OF MOST RECENT DOSE OF STUDY DRUG PRIOR TO AE ON
     Route: 048
     Dates: start: 20190109, end: 20190119
  5. IBUPROFEN. [Concomitant]
     Active Substance: IBUPROFEN
     Indication: ARTHRALGIA
     Route: 048
     Dates: start: 20190122, end: 20190124
  6. OMEPRADEX [Concomitant]
     Active Substance: OMEPRAZOLE
     Route: 048
     Dates: start: 20190219

REACTIONS (1)
  - Hepatic enzyme increased [Recovered/Resolved]

NARRATIVE: CASE EVENT DATE: 20190219
